FAERS Safety Report 6093506-3 (Version None)
Quarter: 2009Q1

REPORT INFORMATION
  Report Type: 
  Country: None (occurrence: None)
  Receive Date: 20090224
  Receipt Date: 20090212
  Transmission Date: 20090719
  Serious: Yes (Death)
  Sender: FDA-Public Use
  Company Number: 200913764GPV

PATIENT
  Age: 69 Year

DRUGS (2)
  1. FLUDARABINE PHOSPHATE [Suspect]
     Indication: CHRONIC LYMPHOCYTIC LEUKAEMIA
     Dosage: ORAL
     Route: 048
  2. CYCLOPHOSPHAMIDE [Suspect]
     Dosage: ORAL
     Route: 048

REACTIONS (1)
  - LISTERIA SEPSIS [None]
